FAERS Safety Report 7008545-5 (Version None)
Quarter: 2010Q3

REPORT INFORMATION
  Report Type: 
  Country: None (occurrence: None)
  Receive Date: 20100922
  Receipt Date: 20100913
  Transmission Date: 20110219
  Serious: Yes (Other)
  Sender: FDA-Public Use
  Company Number: US-PFIZER INC-2010045039

PATIENT
  Sex: Male

DRUGS (11)
  1. CHANTIX [Suspect]
     Indication: SMOKING CESSATION THERAPY
     Dosage: UNK
     Route: 048
     Dates: start: 20070414, end: 20070501
  2. FENTANYL [Concomitant]
     Indication: PAIN
     Dosage: UNK
     Dates: start: 20040101
  3. MACROBID [Concomitant]
     Indication: ANTIBIOTIC THERAPY
     Dosage: UNK
     Dates: start: 20040101
  4. WARFARIN SODIUM [Concomitant]
     Indication: THROMBOSIS
     Dosage: UNK
     Dates: start: 20050101
  5. NEURONTIN [Concomitant]
     Indication: MUSCLE SPASMS
     Dosage: UNK
     Dates: start: 20050101
  6. OXYCODONE [Concomitant]
     Indication: PAIN
     Dosage: UNK
     Dates: start: 20050101
  7. LEXAPRO [Concomitant]
     Indication: DEPRESSION
     Dosage: UNK
     Dates: start: 20050101
  8. LEXAPRO [Concomitant]
     Indication: ANXIETY
  9. BACLOFEN [Concomitant]
     Indication: MUSCLE RELAXANT THERAPY
     Dosage: UNK
     Dates: start: 20060101
  10. NEXIUM [Concomitant]
     Indication: GASTROOESOPHAGEAL REFLUX DISEASE
     Dosage: UNK
     Dates: start: 20060101
  11. DETROL LA [Concomitant]
     Indication: HYPERTONIC BLADDER
     Dosage: UNK
     Dates: start: 20050101, end: 20090101

REACTIONS (5)
  - ABNORMAL DREAMS [None]
  - AGGRESSION [None]
  - ANXIETY [None]
  - DEPRESSION [None]
  - SUICIDAL IDEATION [None]
